FAERS Safety Report 6171954-0 (Version None)
Quarter: 2009Q2

REPORT INFORMATION
  Report Type: 
  Country: None (occurrence: None)
  Receive Date: 20090429
  Receipt Date: 20090417
  Transmission Date: 20091009
  Serious: Yes (Other)
  Sender: FDA-Public Use
  Company Number: PHBS2006BR05982

PATIENT
  Sex: Male
  Weight: 106 kg

DRUGS (21)
  1. LUDIOMIL [Suspect]
     Indication: DEPRESSION
     Dosage: 75 MG, BID
     Route: 048
     Dates: start: 20060416
  2. LUDIOMIL [Suspect]
     Dosage: 4 TABLETS PER DAY
     Route: 048
     Dates: start: 20080520
  3. TRILEPTAL [Suspect]
     Indication: ANXIETY
     Dosage: 300 MG, TID
     Route: 048
  4. TRILEPTAL [Suspect]
     Dosage: 20 ML/D
     Route: 048
  5. OLCADIL [Suspect]
     Dosage: 16 MG/D
     Route: 048
     Dates: end: 20060531
  6. TEGRETOL [Suspect]
     Indication: DEPRESSION
     Dosage: 10 ML, BID
     Route: 048
     Dates: start: 20071207, end: 20080424
  7. TEGRETOL [Suspect]
     Dosage: 10 ML, TID
  8. TEGRETOL [Suspect]
     Dosage: 1 DF, BID
     Dates: start: 20060626
  9. TEGRETOL [Suspect]
     Indication: NERVOUSNESS
     Dosage: 200 MG
  10. TEGRETOL [Suspect]
     Indication: INSOMNIA
  11. LEPONEX [Suspect]
     Indication: SCHIZOPHRENIA
     Dosage: 100 MG, QID
     Route: 048
     Dates: end: 20060626
  12. LEPONEX [Suspect]
     Indication: PSYCHOTIC DISORDER
     Dosage: 4 TABLETS DAILY
     Route: 048
     Dates: end: 20060626
  13. LEVOPROMAZIN [Concomitant]
     Dosage: 1 DF, Q6H
     Route: 048
     Dates: start: 19990101
  14. VALIUM [Concomitant]
     Dosage: 1 DF, Q6H
     Route: 048
     Dates: start: 19990101
  15. MELLARIL [Concomitant]
     Dosage: 100 MG/D
  16. RIVOTRIL [Concomitant]
  17. DALMADORM [Concomitant]
     Dosage: 30 MG/D
  18. ANAFRANIL [Concomitant]
     Indication: DEPRESSION
     Route: 048
  19. SERTRALINE HCL [Concomitant]
     Indication: DEPRESSION
     Dosage: 2 TABLETS IN THE MORNING AND 2 TABLETS AT NIGHT
     Route: 048
     Dates: start: 20071120
  20. LEVOMEPROMAZINE [Concomitant]
     Indication: PSYCHOTIC DISORDER
     Dosage: UNK
     Route: 048
     Dates: start: 20071120
  21. RISPERIDONE [Concomitant]
     Indication: NERVOUS SYSTEM DISORDER
     Dosage: 2 TABLETS DAILY

REACTIONS (14)
  - ABNORMAL DREAMS [None]
  - AGITATION [None]
  - ANXIETY [None]
  - CRYING [None]
  - DEPRESSION [None]
  - HEADACHE [None]
  - HUNGER [None]
  - NAUSEA [None]
  - POLLAKIURIA [None]
  - RESTLESSNESS [None]
  - SOMNOLENCE [None]
  - TACHYCARDIA [None]
  - VOMITING [None]
  - WEIGHT DECREASED [None]
